FAERS Safety Report 22360514 (Version 1)
Quarter: 2023Q2

REPORT INFORMATION
  Report Type: Report from Study
  Country: US (occurrence: US)
  Receive Date: 20230524
  Receipt Date: 20230524
  Transmission Date: 20230721
  Serious: Yes (Other)
  Sender: FDA-Public Use
  Company Number: US-ABBVIE-5177860

PATIENT
  Age: 86 Year
  Sex: Male

DRUGS (1)
  1. VENCLEXTA [Suspect]
     Active Substance: VENETOCLAX
     Indication: Chronic lymphocytic leukaemia
     Route: 048
     Dates: start: 202106

REACTIONS (5)
  - Hip surgery [Unknown]
  - Respiratory disorder [Unknown]
  - Fall [Unknown]
  - Gait disturbance [Unknown]
  - Arthritis [Unknown]

NARRATIVE: CASE EVENT DATE: 20230119
